FAERS Safety Report 6827441-7 (Version None)
Quarter: 2010Q3

REPORT INFORMATION
  Report Type: 
  Country: None (occurrence: None)
  Receive Date: 20100709
  Receipt Date: 20070112
  Transmission Date: 20110219
  Serious: No
  Sender: FDA-Public Use
  Company Number: US-PFIZER INC-2007004786

PATIENT
  Sex: Female

DRUGS (5)
  1. CHANTIX [Suspect]
     Indication: SMOKING CESSATION THERAPY
     Dates: start: 20070108
  2. AMBIEN [Concomitant]
     Indication: SLEEP DISORDER
  3. CYMBALTA [Concomitant]
  4. VICOPROFEN [Concomitant]
     Indication: BACK DISORDER
  5. ALPRAZOLAM [Concomitant]

REACTIONS (1)
  - INSOMNIA [None]
